FAERS Safety Report 17685103 (Version 1)
Quarter: 2020Q2

REPORT INFORMATION
  Report Type: Spontaneous
  Country: US (occurrence: US)
  Receive Date: 20200420
  Receipt Date: 20200420
  Transmission Date: 20200714
  Serious: Yes (Other)
  Sender: FDA-Public Use
  Company Number: US-SA-2020SA102471

PATIENT
  Sex: Female

DRUGS (9)
  1. NYSTATIN. [Concomitant]
     Active Substance: NYSTATIN
  2. TOPIRAMATE. [Concomitant]
     Active Substance: TOPIRAMATE
  3. BUPROPION. [Concomitant]
     Active Substance: BUPROPION
  4. AMPHETAMINE [Concomitant]
     Active Substance: AMPHETAMINE
  5. DEXTROAMPHETAMINE HYDROCHLORIDE [Concomitant]
     Active Substance: DEXTROAMPHETAMINE HYDROCHLORIDE
  6. DUPIXENT [Suspect]
     Active Substance: DUPILUMAB
     Indication: DERMATITIS ATOPIC
     Dosage: 300 MG, QOW
     Route: 058
     Dates: start: 20180515
  7. MUPIROCIN. [Concomitant]
     Active Substance: MUPIROCIN
  8. MONTELUKAST [Concomitant]
     Active Substance: MONTELUKAST SODIUM
  9. GIANVI [Concomitant]
     Active Substance: DROSPIRENONE\ETHINYL ESTRADIOL

REACTIONS (5)
  - Dermatitis atopic [Not Recovered/Not Resolved]
  - Oral fungal infection [Not Recovered/Not Resolved]
  - Sinusitis [Not Recovered/Not Resolved]
  - Nasal polyps [Not Recovered/Not Resolved]
  - Fungal rhinitis [Not Recovered/Not Resolved]
